FAERS Safety Report 18796253 (Version 1)
Quarter: 2021Q1

REPORT INFORMATION
  Report Type: Report from Study
  Country: US (occurrence: US)
  Receive Date: 20210127
  Receipt Date: 20210127
  Transmission Date: 20210419
  Serious: Yes (Other)
  Sender: FDA-Public Use
  Company Number: US-SUNOVION-2021SUN000190

PATIENT
  Age: 65 Year
  Sex: Female

DRUGS (1)
  1. LONHALA MAGNAIR [Suspect]
     Active Substance: GLYCOPYRROLATE
     Dosage: UNK
     Route: 055
     Dates: start: 20210116

REACTIONS (6)
  - Anaemia [Unknown]
  - Dyspnoea [Unknown]
  - Heart rate abnormal [Unknown]
  - Peripheral swelling [Unknown]
  - Hypokalaemia [Unknown]
  - Cough [Unknown]

NARRATIVE: CASE EVENT DATE: 20210118
